FAERS Safety Report 5924890-6 (Version None)
Quarter: 2008Q4

REPORT INFORMATION
  Report Type: 
  Country: None (occurrence: None)
  Receive Date: 20081017
  Receipt Date: 20081017
  Transmission Date: 20090506
  Serious: No
  Sender: FDA-Public Use
  Company Number: None

PATIENT
  Age: 56 Year
  Sex: Male
  Weight: 62.5964 kg

DRUGS (17)
  1. SIMVASTATIN [Suspect]
     Indication: CORONARY ARTERY DISEASE
     Dosage: 80MG  QD PO
     Route: 048
     Dates: start: 20080722, end: 20080820
  2. SIMVASTATIN [Suspect]
     Indication: DYSLIPIDAEMIA
     Dosage: 80MG  QD PO
     Route: 048
     Dates: start: 20080722, end: 20080820
  3. GENGRAF 2 [Concomitant]
  4. ALPRAZOLAM [Concomitant]
  5. CELLCEPT [Concomitant]
  6. LISINOPRIL [Concomitant]
  7. PREDNISONE TAB [Concomitant]
  8. ATENOLOL [Concomitant]
  9. PROCRIT [Concomitant]
  10. ALLOPURINOL [Concomitant]
  11. CALCITRIOL [Concomitant]
  12. MINOXIDIL [Concomitant]
  13. FLUTICASONE PROPIONATE [Concomitant]
  14. FERROUS [Concomitant]
  15. ASPIRIN [Concomitant]
  16. OMEPRAZOLE [Concomitant]
  17. MULTIVITA-BETS-FLUORIDE [Concomitant]

REACTIONS (6)
  - BLOOD CREATINE PHOSPHOKINASE INCREASED [None]
  - CHROMATURIA [None]
  - DIARRHOEA [None]
  - LIVER FUNCTION TEST ABNORMAL [None]
  - MUSCULAR WEAKNESS [None]
  - RENAL FAILURE ACUTE [None]
